FAERS Safety Report 6535146-5 (Version None)
Quarter: 2010Q1

REPORT INFORMATION
  Report Type: 
  Country: None (occurrence: None)
  Receive Date: 20100113
  Receipt Date: 20100105
  Transmission Date: 20100710
  Serious: Yes (Hospitalization)
  Sender: FDA-Public Use
  Company Number: US-RANBAXY-2010RR-30299

PATIENT
  Age: 60 Year
  Sex: Female

DRUGS (3)
  1. HYDROCODONE BITARTRATE AND ACETAMINOPHEN [Suspect]
  2. DEXTROPROPOXYPHENE [Suspect]
  3. DEXTROMETHORPHAN [Suspect]

REACTIONS (12)
  - AGITATION [None]
  - DELIRIUM [None]
  - DELUSIONAL DISORDER, UNSPECIFIED TYPE [None]
  - DRUG INTERACTION [None]
  - HALLUCINATIONS, MIXED [None]
  - HYPERTENSIVE HEART DISEASE [None]
  - POST-TRAUMATIC AMNESTIC DISORDER [None]
  - PSYCHOTIC DISORDER [None]
  - ROAD TRAFFIC ACCIDENT [None]
  - THERAPEUTIC AGENT TOXICITY [None]
  - UPPER RESPIRATORY TRACT INFECTION [None]
  - URINARY TRACT INFECTION [None]
